FAERS Safety Report 10227555 (Version 3)
Quarter: 2014Q2

REPORT INFORMATION
  Report Type: Report from Study
  Country: MY (occurrence: MY)
  Receive Date: 20140610
  Receipt Date: 20140612
  Transmission Date: 20141212
  Serious: Yes (Death)
  Sender: FDA-Public Use
  Company Number: PHHY2014MY038785

PATIENT
  Sex: Female

DRUGS (1)
  1. GLIVEC [Suspect]
     Indication: CHRONIC MYELOID LEUKAEMIA
     Dosage: 400 MG, BID

REACTIONS (3)
  - Chronic myeloid leukaemia [Fatal]
  - Malignant neoplasm progression [Fatal]
  - No therapeutic response [Not Recovered/Not Resolved]
